FAERS Safety Report 6020608-X (Version None)
Quarter: 2008Q4

REPORT INFORMATION
  Report Type: 
  Country: None (occurrence: None)
  Receive Date: 20081227
  Receipt Date: 20081212
  Transmission Date: 20090506
  Serious: Yes (Death)
  Sender: FDA-Public Use
  Company Number: FR-SANOFI-SYNTHELABO-A02200803727

PATIENT
  Sex: Male

DRUGS (4)
  1. ELOXATIN [Suspect]
     Indication: COLON CANCER
     Route: 042
     Dates: start: 20080827, end: 20080827
  2. DEXAMETHASONE [Suspect]
     Indication: COLON CANCER
     Route: 042
  3. FLUOROURACIL [Suspect]
     Indication: COLON CANCER
     Route: 042
  4. CALCIUM LEVOFOLINATE DAKOTA PHARM [Suspect]
     Indication: COLON CANCER
     Route: 042

REACTIONS (5)
  - APLASIA [None]
  - DIARRHOEA [None]
  - HAEMODYNAMIC INSTABILITY [None]
  - RESPIRATORY FAILURE [None]
  - SEPSIS [None]
